FAERS Safety Report 14256281 (Version 5)
Quarter: 2018Q4

REPORT INFORMATION
  Report Type: Report from Study
  Country: DE (occurrence: DE)
  Receive Date: 20171206
  Receipt Date: 20181226
  Transmission Date: 20190204
  Serious: Yes (Hospitalization, Disabling)
  Sender: FDA-Public Use
  Company Number: DE-JNJFOC-20171203072

PATIENT
  Age: 48 Year
  Sex: Male
  Weight: 78 kg

DRUGS (14)
  1. SIMPONI [Suspect]
     Active Substance: GOLIMUMAB
     Indication: COLITIS ULCERATIVE
     Route: 058
  2. L-THYROX [Concomitant]
     Active Substance: LEVOTHYROXINE SODIUM
     Route: 065
     Dates: start: 20160203
  3. PREDNISOLONE. [Concomitant]
     Active Substance: PREDNISOLONE
     Route: 065
     Dates: start: 20170710, end: 20171109
  4. MUTAFLOR [Concomitant]
     Active Substance: ESCHERICHIA COLI
     Route: 065
     Dates: start: 20170713, end: 20180406
  5. SIMPONI [Suspect]
     Active Substance: GOLIMUMAB
     Indication: COLITIS ULCERATIVE
     Route: 058
     Dates: end: 20171106
  6. FERRO SANOL [Concomitant]
     Active Substance: FERROUS GLYCINE SULFATE
     Route: 065
     Dates: start: 201604
  7. L-THYROXIN [Concomitant]
     Active Substance: LEVOTHYROXINE SODIUM
     Route: 065
     Dates: start: 201602
  8. FRESUBIN [Concomitant]
     Active Substance: AMINO ACIDS\DEXTROSE\ELECTROLYTES NOS\SOYBEAN OIL\VITAMINS
     Dosage: 1 VIAL
     Route: 065
     Dates: start: 20160714, end: 20180406
  9. SIMPONI [Suspect]
     Active Substance: GOLIMUMAB
     Indication: COLITIS ULCERATIVE
     Route: 058
     Dates: start: 20170616
  10. SIMPONI [Suspect]
     Active Substance: GOLIMUMAB
     Indication: COLITIS ULCERATIVE
     Route: 058
     Dates: end: 20170710
  11. FERRO SANOL [Concomitant]
     Active Substance: FERROUS GLYCINE SULFATE
     Route: 065
     Dates: start: 20170710, end: 20180607
  12. MESALAZINE [Concomitant]
     Active Substance: MESALAMINE
     Route: 065
     Dates: start: 20150917, end: 20180611
  13. SIMPONI [Suspect]
     Active Substance: GOLIMUMAB
     Indication: COLITIS ULCERATIVE
     Route: 058
     Dates: start: 20160427
  14. METAMIZOLE [Concomitant]
     Active Substance: METAMIZOLE
     Dosage: GIVEN IF REQUIRED
     Route: 065
     Dates: start: 20170710

REACTIONS (14)
  - Pneumonia [Recovering/Resolving]
  - Iron deficiency anaemia [Recovering/Resolving]
  - Off label use [Unknown]
  - Malabsorption [Recovering/Resolving]
  - Hyponatraemia [Recovering/Resolving]
  - Prerenal failure [Recovered/Resolved]
  - Lymphadenopathy [Recovering/Resolving]
  - Diarrhoea [Recovering/Resolving]
  - Dyspnoea exertional [Recovered/Resolved]
  - Tonsillitis [Unknown]
  - Spinal osteoarthritis [Recovering/Resolving]
  - Systemic inflammatory response syndrome [Recovering/Resolving]
  - Incorrect dose administered [Unknown]
  - Osteoarthritis [Recovering/Resolving]

NARRATIVE: CASE EVENT DATE: 20160427
